FAERS Safety Report 6693679-5 (Version None)
Quarter: 2010Q2

REPORT INFORMATION
  Report Type: 
  Country: None (occurrence: None)
  Receive Date: 20100420
  Receipt Date: 20100406
  Transmission Date: 20101027
  Serious: Yes (Other)
  Sender: FDA-Public Use
  Company Number: GB-DEXPHARM-20100412

PATIENT
  Age: 60 Year
  Sex: Female

DRUGS (2)
  1. OMEPRAZOLE [Suspect]
  2. DOMPERIDONE [Concomitant]

REACTIONS (1)
  - CUTANEOUS LUPUS ERYTHEMATOSUS [None]
